FAERS Safety Report 5164765-6 (Version None)
Quarter: 2006Q4

REPORT INFORMATION
  Report Type: 
  Country: None (occurrence: None)
  Receive Date: 20061205
  Receipt Date: 20061129
  Transmission Date: 20070319
  Serious: Yes (Hospitalization)
  Sender: FDA-Public Use
  Company Number: FR-GLAXOSMITHKLINE-B0449020A

PATIENT
  Age: 79 Year
  Sex: Male
  Weight: 89 kg

DRUGS (8)
  1. ZOFRAN [Suspect]
     Dosage: 8MG SINGLE DOSE
     Route: 042
     Dates: start: 20061030, end: 20061030
  2. SOLUPRED [Suspect]
     Dosage: 40MG PER DAY
     Route: 048
     Dates: start: 20061030, end: 20061103
  3. ANAUSIN METOCLOPRAMIDE [Suspect]
     Dosage: 2UNIT PER DAY
     Route: 048
     Dates: start: 20061030, end: 20061103
  4. CALCIUM FOLINATE [Suspect]
     Dosage: 800MG SINGLE DOSE
     Route: 042
     Dates: start: 20061030, end: 20061030
  5. FLUOROURACIL [Suspect]
     Dosage: 5600MG CUMULATIVE DOSE
     Route: 042
     Dates: start: 20061030, end: 20061101
  6. ELOXATIN [Suspect]
     Dosage: 170MG SINGLE DOSE
     Route: 042
     Dates: start: 20061030, end: 20061030
  7. XANAX [Concomitant]
     Dosage: .5MG PER DAY
     Route: 048
     Dates: start: 20061029, end: 20061030
  8. APROVEL [Concomitant]
     Dosage: 300MG PER DAY
     Route: 048

REACTIONS (2)
  - COLITIS ULCERATIVE [None]
  - DIARRHOEA HAEMORRHAGIC [None]
